FAERS Safety Report 8477129-4 (Version None)
Quarter: 2012Q2

REPORT INFORMATION
  Report Type: 
  Country: None (occurrence: None)
  Receive Date: 20120629
  Receipt Date: 20120113
  Transmission Date: 20120825
  Serious: No
  Sender: FDA-Public Use
  Company Number: US-PFIZER INC-2012153329

PATIENT
  Sex: Female

DRUGS (1)
  1. PROCARDIA XL [Suspect]
     Indication: BLOOD PRESSURE ABNORMAL
     Dosage: UNK
     Route: 048

REACTIONS (1)
  - HEARING IMPAIRED [None]
